FAERS Safety Report 15407389 (Version 6)
Quarter: 2018Q4

REPORT INFORMATION
  Report Type: Spontaneous
  Country: US (occurrence: US)
  Receive Date: 20180920
  Receipt Date: 20181210
  Transmission Date: 20190204
  Serious: Yes (Death, Life-Threatening, Hospitalization, Other)
  Sender: FDA-Public Use
  Company Number: US-UNITED THERAPEUTICS-UNT-2018-014990

PATIENT
  Age: 57 Year
  Sex: Female
  Weight: 43.99 kg

DRUGS (6)
  1. REMODULIN [Suspect]
     Active Substance: TREPROSTINIL
     Indication: PULMONARY ARTERIAL HYPERTENSION
     Dosage: 0.114 ?G/KG, CONTINUING
     Route: 041
     Dates: start: 20150409, end: 20181013
  2. OXYGEN. [Concomitant]
     Active Substance: OXYGEN
     Dosage: 3 L, UNK
     Route: 065
  3. OXYGEN. [Concomitant]
     Active Substance: OXYGEN
     Indication: PRODUCT USED FOR UNKNOWN INDICATION
     Dosage: 6 L, UNK
     Route: 065
  4. ADCIRCA [Concomitant]
     Active Substance: TADALAFIL
     Indication: PRODUCT USED FOR UNKNOWN INDICATION
     Route: 065
  5. LETAIRIS [Suspect]
     Active Substance: AMBRISENTAN
     Indication: DRUG USE DISORDER
  6. LETAIRIS [Suspect]
     Active Substance: AMBRISENTAN
     Indication: PULMONARY ARTERIAL HYPERTENSION
     Dosage: 10 MG, QID
     Route: 065
     Dates: start: 20150410

REACTIONS (8)
  - Allergic respiratory disease [Fatal]
  - Right ventricular failure [Fatal]
  - Cardiac arrest [Fatal]
  - Asthma [Fatal]
  - Pulmonary arterial hypertension [Fatal]
  - Blood glucose increased [Fatal]
  - Chronic obstructive pulmonary disease [Fatal]
  - Candida infection [Fatal]

NARRATIVE: CASE EVENT DATE: 201809
